FAERS Safety Report 6183226-9 (Version None)
Quarter: 2009Q2

REPORT INFORMATION
  Report Type: 
  Country: None (occurrence: None)
  Receive Date: 20090506
  Receipt Date: 20090423
  Transmission Date: 20091009
  Serious: Yes (Hospitalization)
  Sender: FDA-Public Use
  Company Number: 256484

PATIENT
  Age: 50 Year
  Sex: Female

DRUGS (1)
  1. PACLITAXEL [Suspect]
     Indication: COLON CANCER
     Dosage: 330 MG, INTRAVENOUS
     Route: 042
     Dates: start: 20090417, end: 20090417

REACTIONS (4)
  - HYPERSENSITIVITY [None]
  - INFUSION RELATED REACTION [None]
  - PALLOR [None]
  - PULSE ABSENT [None]
